FAERS Safety Report 24583328 (Version 1)
Quarter: 2024Q4

REPORT INFORMATION
  Report Type: Spontaneous
  Country: US (occurrence: US)
  Receive Date: 20241106
  Receipt Date: 20241106
  Transmission Date: 20250115
  Serious: Yes (Hospitalization, Other)
  Sender: GLAND PHARMA LTD
  Company Number: US-GLANDPHARMA-US-2024GLNLIT00948

PATIENT
  Age: 75 Year
  Sex: Male

DRUGS (1)
  1. DEXAMETHASONE SODIUM PHOSPHATE [Suspect]
     Active Substance: DEXAMETHASONE SODIUM PHOSPHATE
     Indication: Eye inflammation
     Route: 031

REACTIONS (3)
  - Chorioretinitis [Recovered/Resolved]
  - Endophthalmitis [Recovered/Resolved]
  - Endocarditis histoplasma [Recovered/Resolved]
